FAERS Safety Report 21726139 (Version 1)
Quarter: 2022Q4

REPORT INFORMATION
  Report Type: Spontaneous
  Country: US (occurrence: US)
  Receive Date: 20221214
  Receipt Date: 20221214
  Transmission Date: 20230112
  Serious: No
  Sender: FDA-Public Use
  Company Number: US-NOVEN PHARMACEUTICALS, INC.-2021-NOV-US004029

PATIENT
  Sex: Female

DRUGS (5)
  1. ESTRADIOL [Suspect]
     Active Substance: ESTRADIOL
     Indication: Oestradiol decreased
     Dosage: 0.075 MG
     Route: 062
  2. ESTRADIOL [Suspect]
     Active Substance: ESTRADIOL
     Indication: Insomnia
  3. ESTRADIOL [Suspect]
     Active Substance: ESTRADIOL
     Indication: Hot flush
  4. ESTRADIOL [Suspect]
     Active Substance: ESTRADIOL
     Indication: Mood swings
  5. ESTRADIOL [Suspect]
     Active Substance: ESTRADIOL
     Indication: Premature menopause

REACTIONS (3)
  - Product adhesion issue [Not Recovered/Not Resolved]
  - Adhesive tape use [Not Recovered/Not Resolved]
  - No adverse event [Unknown]
